FAERS Safety Report 7544104-3 (Version None)
Quarter: 2011Q2

REPORT INFORMATION
  Report Type: 
  Country: None (occurrence: None)
  Receive Date: 20110613
  Receipt Date: 20051129
  Transmission Date: 20111010
  Serious: Yes (Death)
  Sender: FDA-Public Use
  Company Number: PHMT2005CA00614

PATIENT
  Sex: Male

DRUGS (2)
  1. SEROQUEL [Concomitant]
     Dosage: 100 MG, QD
  2. CLOZAPINE [Suspect]
     Dosage: 350 MG, QD
     Dates: start: 19930630

REACTIONS (4)
  - METASTASES TO LUNG [None]
  - TERMINAL STATE [None]
  - RESPIRATORY FAILURE [None]
  - RENAL CANCER METASTATIC [None]
